FAERS Safety Report 7523100-6 (Version None)
Quarter: 2011Q2

REPORT INFORMATION
  Report Type: 
  Country: None (occurrence: None)
  Receive Date: 20110603
  Receipt Date: 20110530
  Transmission Date: 20111010
  Serious: Yes (Other)
  Sender: FDA-Public Use
  Company Number: BR-ABBOTT-11P-020-0729306-00

PATIENT
  Sex: Male
  Weight: 75 kg

DRUGS (10)
  1. ATENOLOL [Concomitant]
     Indication: BLOOD PRESSURE ABNORMAL
  2. PREDNISONE [Concomitant]
     Route: 048
     Dates: start: 20110201, end: 20110301
  3. SULFASALAZINE [Concomitant]
     Indication: SPONDYLITIS
     Route: 048
     Dates: start: 20090101
  4. ATENOLOL [Concomitant]
     Indication: PROPHYLAXIS
     Route: 048
     Dates: start: 20110201
  5. PANTOPRAZOLE [Concomitant]
     Indication: GASTRITIS
     Route: 048
     Dates: start: 20110101
  6. PREDNISONE [Concomitant]
     Route: 048
     Dates: start: 20110501
  7. HUMIRA [Suspect]
     Indication: ANKYLOSING SPONDYLITIS
     Route: 058
     Dates: start: 20091101, end: 20110101
  8. PREDNISONE [Concomitant]
     Indication: SPONDYLITIS
     Route: 048
     Dates: start: 20090101, end: 20110201
  9. PREDNISONE [Concomitant]
     Route: 048
     Dates: start: 20110301, end: 20110501
  10. NAPROXEN [Concomitant]
     Indication: PAIN
     Route: 048
     Dates: start: 20090101

REACTIONS (6)
  - HYPERSENSITIVITY [None]
  - ARTERIAL OCCLUSIVE DISEASE [None]
  - CHEST PAIN [None]
  - GLUCOSE TOLERANCE IMPAIRED [None]
  - ANGINA PECTORIS [None]
  - OSTEOPENIA [None]
